FAERS Safety Report 10141822 (Version 4)
Quarter: 2018Q1

REPORT INFORMATION
  Report Type: Report from Study
  Country: IT (occurrence: IT)
  Receive Date: 20140429
  Receipt Date: 20180216
  Transmission Date: 20180508
  Serious: Yes (Death, Other)
  Sender: FDA-Public Use
  Company Number: IT-ASTELLAS-2014US004561

PATIENT

DRUGS (2)
  1. ERLOTINIB [Suspect]
     Active Substance: ERLOTINIB
     Indication: NON-SMALL CELL LUNG CANCER
     Route: 048
  2. TIVANTINIB [Suspect]
     Active Substance: TIVANTINIB
     Indication: NON-SMALL CELL LUNG CANCER
     Route: 048

REACTIONS (18)
  - Anaemia [Unknown]
  - Bradycardia [Unknown]
  - Diarrhoea [Unknown]
  - Rash [Unknown]
  - Pneumonia [Fatal]
  - Dermatitis acneiform [Unknown]
  - Nausea [Unknown]
  - Vomiting [Unknown]
  - Respiratory failure [Fatal]
  - Fatigue [Unknown]
  - Decreased appetite [Unknown]
  - Sepsis [Fatal]
  - Febrile neutropenia [Unknown]
  - Septic shock [Fatal]
  - Neutropenia [Unknown]
  - Cough [Unknown]
  - Asthenia [Unknown]
  - Dyspnoea [Unknown]
